FAERS Safety Report 24544470 (Version 2)
Quarter: 2024Q4

REPORT INFORMATION
  Report Type: Spontaneous
  Country: JP (occurrence: JP)
  Receive Date: 20241024
  Receipt Date: 20241217
  Transmission Date: 20250115
  Serious: Yes (Other)
  Sender: MERCK
  Company Number: JP-MSD-M2024-42053

PATIENT
  Sex: Male

DRUGS (3)
  1. KEYTRUDA [Suspect]
     Active Substance: PEMBROLIZUMAB
     Indication: Non-small cell lung cancer
     Dosage: 200 MILLIGRAM, Q3W
     Route: 041
     Dates: start: 202409
  2. CISPLATIN [Suspect]
     Active Substance: CISPLATIN
     Indication: Non-small cell lung cancer
     Dosage: UNK
     Route: 042
     Dates: start: 202409
  3. GEMCITABINE HYDROCHLORIDE [Concomitant]
     Active Substance: GEMCITABINE HYDROCHLORIDE
     Indication: Non-small cell lung cancer
     Dosage: UNK
     Route: 042
     Dates: start: 202409

REACTIONS (1)
  - Renal impairment [Unknown]

NARRATIVE: CASE EVENT DATE: 20241001
